FAERS Safety Report 6816420-1 (Version None)
Quarter: 2010Q3

REPORT INFORMATION
  Report Type: 
  Country: None (occurrence: None)
  Receive Date: 20100705
  Receipt Date: 20100630
  Transmission Date: 20110219
  Serious: Yes (Hospitalization)
  Sender: FDA-Public Use
  Company Number: JP-BRISTOL-MYERS SQUIBB COMPANY-14754816

PATIENT
  Age: 37 Year
  Sex: Female

DRUGS (17)
  1. ABILIFY [Suspect]
     Indication: SCHIZOPHRENIA
     Dosage: ABILIFY TABS 6MG
     Route: 048
     Dates: start: 20060101
  2. ABILIFY [Suspect]
     Indication: AFFECT LABILITY
     Dosage: ABILIFY TABS 6MG
     Route: 048
     Dates: start: 20060101
  3. ABILIFY [Suspect]
     Indication: DEPRESSIVE SYMPTOM
     Dosage: ABILIFY TABS 6MG
     Route: 048
     Dates: start: 20060101
  4. ABILIFY [Suspect]
     Indication: PERSONALITY DISORDER
     Dosage: ABILIFY TABS 6MG
     Route: 048
     Dates: start: 20060101
  5. MIRADOL [Suspect]
     Indication: AFFECT LABILITY
     Dosage: TABS
     Route: 048
     Dates: start: 20060101
  6. MIRADOL [Suspect]
     Indication: DEPRESSIVE SYMPTOM
     Dosage: TABS
     Route: 048
     Dates: start: 20060101
  7. MIRADOL [Suspect]
     Indication: PERSONALITY DISORDER
     Dosage: TABS
     Route: 048
     Dates: start: 20060101
  8. LULLAN [Suspect]
     Indication: AFFECT LABILITY
     Route: 048
     Dates: start: 20060101
  9. LULLAN [Suspect]
     Indication: DEPRESSIVE SYMPTOM
     Route: 048
     Dates: start: 20060101
  10. LULLAN [Suspect]
     Indication: PERSONALITY DISORDER
     Route: 048
     Dates: start: 20060101
  11. SEROQUEL [Suspect]
     Indication: AFFECT LABILITY
     Dosage: TABS
     Route: 048
     Dates: start: 20060101
  12. SEROQUEL [Suspect]
     Indication: DEPRESSIVE SYMPTOM
     Dosage: TABS
     Route: 048
     Dates: start: 20060101
  13. SEROQUEL [Suspect]
     Indication: PERSONALITY DISORDER
     Dosage: TABS
     Route: 048
     Dates: start: 20060101
  14. BENZALIN [Suspect]
     Indication: INSOMNIA
     Route: 048
     Dates: start: 20060101
  15. DEPROMEL [Suspect]
     Indication: DEPRESSIVE SYMPTOM
     Route: 048
     Dates: start: 20060101
  16. DEPROMEL [Suspect]
     Indication: AFFECT LABILITY
     Route: 048
     Dates: start: 20060101
  17. DEPROMEL [Suspect]
     Indication: PERSONALITY DISORDER
     Route: 048
     Dates: start: 20060101

REACTIONS (2)
  - ABORTION SPONTANEOUS [None]
  - PREGNANCY [None]
